FAERS Safety Report 9385109 (Version 1)
Quarter: 2013Q3

REPORT INFORMATION
  Report Type: Spontaneous
  Country: US (occurrence: US)
  Receive Date: 20130705
  Receipt Date: 20130705
  Transmission Date: 20140515
  Serious: Yes (Other)
  Sender: FDA-Public Use
  Company Number: US-NOVOPROD-382035

PATIENT
  Age: 49 Year
  Sex: Male
  Weight: 158.73 kg

DRUGS (1)
  1. VICTOZA [Suspect]
     Indication: TYPE 2 DIABETES MELLITUS
     Dosage: UNKNOWN
     Route: 058
     Dates: start: 201303, end: 201304

REACTIONS (1)
  - Pancreatic carcinoma [Unknown]
